FAERS Safety Report 5649246-5 (Version None)
Quarter: 2008Q1

REPORT INFORMATION
  Report Type: 
  Country: None (occurrence: None)
  Receive Date: 20080304
  Receipt Date: 20080225
  Transmission Date: 20080703
  Serious: Yes (Hospitalization)
  Sender: FDA-Public Use
  Company Number: AU-JNJFOC-20080206246

PATIENT
  Age: 65 Year
  Sex: Male

DRUGS (4)
  1. RISPERDAL [Suspect]
  2. RISPERDAL [Suspect]
     Indication: BIPOLAR DISORDER
  3. LITHIUM CARBONATE [Interacting]
     Indication: DRUG USE FOR UNKNOWN INDICATION
  4. VALPROATE SODIUM [Suspect]
     Indication: DRUG USE FOR UNKNOWN INDICATION

REACTIONS (8)
  - DRUG INTERACTION [None]
  - DRUG TOXICITY [None]
  - FALL [None]
  - HYPOTHYROIDISM [None]
  - PARKINSONISM [None]
  - RENAL FAILURE [None]
  - RENAL IMPAIRMENT [None]
  - TOXIC ENCEPHALOPATHY [None]
